FAERS Safety Report 9913146 (Version 1)
Quarter: 2014Q1

REPORT INFORMATION
  Report Type: Spontaneous
  Country: US (occurrence: None)
  Receive Date: 20140218
  Receipt Date: 20140218
  Transmission Date: 20141002
  Serious: Yes (Life-Threatening, Hospitalization)
  Sender: FDA-Public Use
  Company Number: None

PATIENT
  Age: 85 Year
  Sex: Female
  Weight: 62.8 kg

DRUGS (8)
  1. XARELTO 15 MG JANSSEN [Suspect]
     Indication: ATRIAL FIBRILLATION
     Route: 048
  2. VITAMIN D3 [Concomitant]
  3. CYANOCOBALAMINE [Concomitant]
  4. ALBUTEROL [Concomitant]
  5. DILTIAZEM 180 MG [Concomitant]
  6. DIGOXIN 0.125MG WALGREEN [Concomitant]
  7. GENERIC FOR BACTRIM DS [Concomitant]
  8. ATORVASTATIN [Concomitant]

REACTIONS (1)
  - Pulmonary embolism [None]
